FAERS Safety Report 7023599-8 (Version None)
Quarter: 2010Q3

REPORT INFORMATION
  Report Type: 
  Country: None (occurrence: None)
  Receive Date: 20100930
  Receipt Date: 20100930
  Transmission Date: 20110219
  Serious: Yes (Death)
  Sender: FDA-Public Use
  Company Number: None

PATIENT
  Sex: Male

DRUGS (1)
  1. CLOZAPINE [Suspect]
     Indication: SCHIZOPHRENIA
     Dosage: 200 MG QD PO - YEARS
     Route: 048

REACTIONS (4)
  - CARDIAC ARREST [None]
  - CHEST PAIN [None]
  - FALL [None]
  - HYPOXIC-ISCHAEMIC ENCEPHALOPATHY [None]
